FAERS Safety Report 21707330 (Version 5)
Quarter: 2023Q1

REPORT INFORMATION
  Report Type: Report from Study
  Country: JP (occurrence: JP)
  Receive Date: 20221209
  Receipt Date: 20230116
  Transmission Date: 20230418
  Serious: Yes (Hospitalization)
  Sender: FDA-Public Use
  Company Number: JP-PFIZER INC-PV202200117010

PATIENT
  Age: 82 Year
  Sex: Male
  Weight: 43.1 kg

DRUGS (16)
  1. TALAZOPARIB [Suspect]
     Active Substance: TALAZOPARIB
     Indication: Prostate cancer metastatic
     Dosage: DAILY
     Route: 048
     Dates: start: 20210805, end: 20221202
  2. ENZALUTAMIDE [Suspect]
     Active Substance: ENZALUTAMIDE
     Indication: Prostate cancer metastatic
     Dosage: 160 MG, DAILY
     Route: 048
     Dates: start: 20210805, end: 20221202
  3. LEUPROLIDE ACETATE [Concomitant]
     Active Substance: LEUPROLIDE ACETATE
     Indication: Antiandrogen therapy
     Dosage: 11.25 MG, EVERY 3 MONTHS
     Route: 058
     Dates: start: 20220929
  4. DENOSUMAB [Concomitant]
     Active Substance: DENOSUMAB
     Indication: Metastases to bone
     Dosage: 120 MG, CYCLIC (EVERY 4 WEEKS)
     Route: 058
     Dates: start: 20210916
  5. THEOPHYLLINE [Concomitant]
     Active Substance: THEOPHYLLINE
     Indication: Asthma
     Dosage: 100 MG, 2X/DAY
     Route: 048
     Dates: start: 2001
  6. FEXOFENADINE HYDROCHLORIDE [Concomitant]
     Active Substance: FEXOFENADINE HYDROCHLORIDE
     Indication: Asthma
     Dosage: 60 MG, 2X/DAY
     Route: 048
     Dates: start: 2001
  7. CARBOCYSTEINE [Concomitant]
     Active Substance: CARBOCYSTEINE
     Indication: Asthma
     Dosage: 500 MG, 2X/DAY
     Route: 048
     Dates: start: 2001
  8. ACETAMINOPHEN [Concomitant]
     Active Substance: ACETAMINOPHEN
     Indication: Dysuria
     Dosage: 400 MG, AS NEEDED (PRN)
     Route: 048
     Dates: start: 20010615
  9. BUDESONIDE\FORMOTEROL FUMARATE [Concomitant]
     Active Substance: BUDESONIDE\FORMOTEROL FUMARATE
     Indication: Asthma
     Dosage: 1 PUFF, 2X/DAY
     Route: 048
     Dates: start: 2001
  10. METOCLOPRAMIDE [Concomitant]
     Active Substance: METOCLOPRAMIDE
     Indication: Vomiting
     Dosage: 5 MG, 3X/DAY
     Route: 048
     Dates: start: 20210831
  11. METOCLOPRAMIDE [Concomitant]
     Active Substance: METOCLOPRAMIDE
     Indication: Nausea
  12. HEPARINOID [Concomitant]
     Indication: Eczema asteatotic
     Dosage: UNK UNK, 3X/DAY
     Route: 050
     Dates: start: 20210831
  13. CALCIUM CARBONATE\CHOLECALCIFEROL\MAGNESIUM CARBONATE [Concomitant]
     Active Substance: CALCIUM CARBONATE\CHOLECALCIFEROL\MAGNESIUM CARBONATE
     Indication: Hypocalcaemia
     Dosage: 2 TABLETS, ONCE
     Route: 048
     Dates: start: 20210917
  14. TIOTROPIUM BROMIDE [Concomitant]
     Active Substance: TIOTROPIUM BROMIDE
     Indication: Asthma
     Dosage: 2 PUFFS, SINGLE
     Route: 048
     Dates: start: 2001
  15. AMLODIPINE BESYLATE [Concomitant]
     Active Substance: AMLODIPINE BESYLATE
     Indication: Angina pectoris
     Dosage: 5 MG, 1X/DAY
     Route: 048
     Dates: start: 20220514
  16. PROCATEROL HYDROCHLORIDE HYDRATE [Concomitant]
     Indication: Asthma
     Dosage: 2 PUFFS, AS NEEDED (PRN)
     Route: 048
     Dates: start: 2001

REACTIONS (1)
  - Pneumonia bacterial [Recovered/Resolved]

NARRATIVE: CASE EVENT DATE: 20221203
